FAERS Safety Report 20529564 (Version 3)
Quarter: 2022Q2

REPORT INFORMATION
  Report Type: Spontaneous
  Country: US (occurrence: US)
  Receive Date: 20220301
  Receipt Date: 20220407
  Transmission Date: 20220720
  Serious: Yes (Other)
  Sender: FDA-Public Use
  Company Number: US-CELLTRION INC.-2022US002318

PATIENT

DRUGS (22)
  1. TRUXIMA [Suspect]
     Active Substance: RITUXIMAB-ABBS
     Indication: Rheumatoid arthritis
     Dosage: UNK
  2. TRUXIMA [Suspect]
     Active Substance: RITUXIMAB-ABBS
     Dosage: 1000 MG INTRAVENOUSLY ON DAY 1 AND DAY 14, REPEATING EVERY 6 MONTHS
     Route: 042
     Dates: start: 20210806
  3. TRUXIMA [Suspect]
     Active Substance: RITUXIMAB-ABBS
     Dosage: 1000 MG INTRAVENOUSLY ON DAY 1 AND DAY 14, REPEATING EVERY 6 MONTHS
     Route: 042
     Dates: start: 20210823
  4. TRUXIMA [Suspect]
     Active Substance: RITUXIMAB-ABBS
     Dosage: 1000 MG INTRAVENOUSLY ON DAY 1 AND DAY 14, REPEATING EVERY 6 MONTHS
     Route: 042
     Dates: start: 20220204
  5. TRUXIMA [Suspect]
     Active Substance: RITUXIMAB-ABBS
     Dosage: 1000 MG INTRAVENOUSLY ON DAY 1 AND DAY 14, REPEATING EVERY 6 MONTHS
     Route: 042
     Dates: start: 20220225
  6. ALBUTEROL [Concomitant]
     Active Substance: ALBUTEROL
     Dosage: UNK, PRN
  7. BENZONATATE [Concomitant]
     Active Substance: BENZONATATE
     Dosage: 100 MG, PRN
  8. TUMS [Concomitant]
     Active Substance: CALCIUM CARBONATE
     Dosage: 500 MG, DAILY
  9. VITAMIN D3 [Concomitant]
     Active Substance: CHOLECALCIFEROL
     Dosage: 1000 UNITS DAILY
  10. VITAMIN B12 [Concomitant]
     Active Substance: CYANOCOBALAMIN
     Dosage: 50 MICROGRAM, DAILY
  11. LEXAPRO [Concomitant]
     Active Substance: ESCITALOPRAM OXALATE
     Dosage: 20 MG, DAILY
  12. FERROUS SULFATE [Concomitant]
     Active Substance: FERROUS SULFATE
     Dosage: 325 MG, DAILY
  13. BREO ELLIPTA [Concomitant]
     Active Substance: FLUTICASONE FUROATE\VILANTEROL TRIFENATATE
     Dosage: 1 PUFF DAILY
  14. LISINOPRIL [Concomitant]
     Active Substance: LISINOPRIL
     Dosage: 40 MG PO NIGHTLY
     Route: 048
  15. LORAZEPAM [Concomitant]
     Active Substance: LORAZEPAM
     Dosage: 1 MG DAILY PRN
  16. LUTEIN [Concomitant]
     Active Substance: LUTEIN
     Dosage: 20 MG PRN
  17. MELATONIN [Concomitant]
     Active Substance: MELATONIN
     Dosage: 2 CAPSULES NIGHTLY
  18. METFORMIN [Concomitant]
     Active Substance: METFORMIN HYDROCHLORIDE
     Dosage: XR 500 MG TWICE DAILY
  19. CELLCEPT [Concomitant]
     Active Substance: MYCOPHENOLATE MOFETIL
     Dosage: 500 MG TWICE DAILY
  20. NAPROSYN [Concomitant]
     Active Substance: NAPROXEN
     Dosage: 250 MG TWICE DAILY
  21. PROPRANOLOL [Concomitant]
     Active Substance: PROPRANOLOL HYDROCHLORIDE
     Dosage: 10 MG TWICE DAILY PRN
  22. CRESTOR [Concomitant]
     Active Substance: ROSUVASTATIN CALCIUM
     Dosage: 5 MG NIGHTLY

REACTIONS (3)
  - Hypertension [Recovered/Resolved]
  - Treatment delayed [Unknown]
  - Off label use [Unknown]

NARRATIVE: CASE EVENT DATE: 20220218
